FAERS Safety Report 7226999-6 (Version None)
Quarter: 2011Q1

REPORT INFORMATION
  Report Type: 
  Country: None (occurrence: None)
  Receive Date: 20110114
  Receipt Date: 20101228
  Transmission Date: 20110831
  Serious: Yes (Other)
  Sender: FDA-Public Use
  Company Number: US-RB-017229-10

PATIENT
  Age: 3 Year
  Sex: Female
  Weight: 13 kg

DRUGS (2)
  1. AUGMENTIN '125' [Concomitant]
  2. MUCINEX [Suspect]
     Dosage: PATIENT TOOK 1 PACKET AT 10AM AND 1 PACKET AT 6PM
     Route: 048

REACTIONS (5)
  - HYPERTENSION [None]
  - HEART RATE INCREASED [None]
  - ACCIDENTAL DRUG INTAKE BY CHILD [None]
  - HALLUCINATION [None]
  - FEELING ABNORMAL [None]
